FAERS Safety Report 20807404 (Version 1)
Quarter: 2022Q2

REPORT INFORMATION
  Report Type: Spontaneous
  Country: US (occurrence: None)
  Receive Date: 20220509
  Receipt Date: 20220509
  Transmission Date: 20220721
  Serious: Yes (Life-Threatening, Hospitalization)
  Sender: FDA-Public Use
  Company Number: None

PATIENT
  Age: 78 Year
  Sex: Male
  Weight: 80 kg

DRUGS (2)
  1. WARFARIN SODIUM [Suspect]
     Active Substance: WARFARIN SODIUM
     Indication: Pulmonary embolism
     Dosage: FREQUENCY : DAILY;?
     Route: 048
     Dates: start: 20160926, end: 20220118
  2. WARFARIN SODIUM [Suspect]
     Active Substance: WARFARIN SODIUM
     Indication: Deep vein thrombosis

REACTIONS (4)
  - Anticoagulation drug level above therapeutic [None]
  - Haemothorax [None]
  - Therapeutic drug monitoring analysis not performed [None]
  - Red blood cell transfusion [None]

NARRATIVE: CASE EVENT DATE: 20220118
